FAERS Safety Report 17557733 (Version 1)
Quarter: 2020Q1

REPORT INFORMATION
  Report Type: Spontaneous
  Country: US (occurrence: US)
  Receive Date: 20200318
  Receipt Date: 20200318
  Transmission Date: 20200409
  Serious: No
  Sender: FDA-Public Use
  Company Number: US-BAYER-2020-046641

PATIENT
  Age: 12 Year
  Sex: Female

DRUGS (2)
  1. ALEVE [Suspect]
     Active Substance: NAPROXEN SODIUM
     Indication: COSTOCHONDRITIS
     Dosage: 2 DF
     Route: 048
  2. ALEVE BACK AND MUSCLE PAIN [Suspect]
     Active Substance: NAPROXEN SODIUM
     Indication: COSTOCHONDRITIS
     Dosage: 2 DF SOMETIMES
     Route: 048

REACTIONS (1)
  - Product use in unapproved indication [Unknown]
